FAERS Safety Report 13260690 (Version 1)
Quarter: 2017Q1

REPORT INFORMATION
  Report Type: Report from Study
  Country: DE (occurrence: DE)
  Receive Date: 20170222
  Receipt Date: 20170222
  Transmission Date: 20170428
  Serious: Yes (Hospitalization, Other)
  Sender: FDA-Public Use
  Company Number: DE-BRISTOL-MYERS SQUIBB COMPANY-BMS-2015-063947

PATIENT
  Age: 74 Year
  Sex: Female

DRUGS (6)
  1. CETUXIMAB. [Suspect]
     Active Substance: CETUXIMAB
     Dosage: 407.5 MG, WEEKLY (1/W)
     Route: 042
     Dates: start: 20140109
  2. CETUXIMAB. [Suspect]
     Active Substance: CETUXIMAB
     Indication: SQUAMOUS CELL CARCINOMA OF HEAD AND NECK
     Dosage: 672 MG, WEEKLY (1/W)
     Route: 042
     Dates: start: 20140102
  3. CETUXIMAB. [Suspect]
     Active Substance: CETUXIMAB
     Dosage: 248.5 MG/M2, WEEKLY (1/W)
     Route: 042
     Dates: start: 20140116
  4. CETUXIMAB. [Suspect]
     Active Substance: CETUXIMAB
     Dosage: 407.5 MG, WEEKLY (1/W)
     Route: 042
     Dates: start: 20140116
  5. CANDECOR COMP [Concomitant]
     Indication: HYPERTENSION
     Dosage: UNK
  6. JONOSTERIL                         /00351401/ [Concomitant]
     Indication: DEHYDRATION
     Dosage: UNK
     Dates: start: 20140210, end: 20140221

REACTIONS (3)
  - Oral pain [Recovered/Resolved]
  - Radiation skin injury [Recovered/Resolved]
  - Mucosal inflammation [Recovered/Resolved]

NARRATIVE: CASE EVENT DATE: 20140307
